FAERS Safety Report 25406297 (Version 2)
Quarter: 2025Q3

REPORT INFORMATION
  Report Type: Spontaneous
  Country: EU (occurrence: EU)
  Receive Date: 20250606
  Receipt Date: 20250714
  Transmission Date: 20251020
  Serious: Yes (Disabling)
  Sender: ROCHE
  Company Number: EU-ROCHE-10000297815

PATIENT
  Sex: Female

DRUGS (1)
  1. FARICIMAB [Suspect]
     Active Substance: FARICIMAB
     Indication: Retinal vein occlusion
     Route: 050
     Dates: start: 20240806, end: 20250415

REACTIONS (2)
  - Anterior chamber inflammation [Unknown]
  - Eye inflammation [Unknown]
